FAERS Safety Report 6256086-5 (Version None)
Quarter: 2009Q2

REPORT INFORMATION
  Report Type: 
  Country: None (occurrence: None)
  Receive Date: 20090630
  Receipt Date: 20090630
  Transmission Date: 20091009
  Serious: Yes (Hospitalization)
  Sender: FDA-Public Use
  Company Number: None

PATIENT
  Age: 48 Year
  Sex: Female
  Weight: 86.1834 kg

DRUGS (2)
  1. YAZ [Suspect]
     Indication: CONTRACEPTION
     Dosage: ONE PILL DAILY PO
     Route: 048
     Dates: start: 20030520, end: 20090124
  2. YAZ [Suspect]
     Indication: MENSTRUAL DISORDER
     Dosage: ONE PILL DAILY PO
     Route: 048
     Dates: start: 20030520, end: 20090124

REACTIONS (1)
  - PULMONARY EMBOLISM [None]
